FAERS Safety Report 4301323-7 (Version None)
Quarter: 2004Q1

REPORT INFORMATION
  Report Type: 
  Country: None (occurrence: None)
  Receive Date: 20040223
  Receipt Date: 20030205
  Transmission Date: 20041129
  Serious: No
  Sender: FDA-Public Use
  Company Number: US-GLAXOSMITHKLINE-A0395540A

PATIENT
  Sex: Female

DRUGS (2)
  1. NAVELBINE [Suspect]
     Indication: BREAST CANCER
     Dosage: 25MGM2 SEE DOSAGE TEXT
     Route: 042
  2. HERCEPTIN [Concomitant]
     Indication: BREAST CANCER
     Route: 065

REACTIONS (1)
  - LIVER FUNCTION TEST ABNORMAL [None]
